FAERS Safety Report 15708302 (Version 1)
Quarter: 2018Q4

REPORT INFORMATION
  Report Type: Spontaneous
  Country: US (occurrence: US)
  Receive Date: 20181128
  Receipt Date: 20181128
  Transmission Date: 20190205
  Serious: Yes (Death)
  Sender: FDA-Public Use
  Company Number: None

PATIENT
  Age: 73 Year
  Sex: Male

DRUGS (1)
  1. NEULASTA [Suspect]
     Active Substance: PEGFILGRASTIM
     Indication: PANCREATIC CARCINOMA
     Dosage: ?          OTHER FREQUENCY:24 HRS AFTER;?
     Route: 058
     Dates: start: 20171228

REACTIONS (1)
  - Death [None]

NARRATIVE: CASE EVENT DATE: 20181120
